FAERS Safety Report 9044959 (Version 5)
Quarter: 2013Q3

REPORT INFORMATION
  Report Type: Report from Study
  Country: US (occurrence: US)
  Receive Date: 20130130
  Receipt Date: 20130718
  Transmission Date: 20140515
  Serious: Yes (Hospitalization)
  Sender: FDA-Public Use
  Company Number: US-JNJFOC-20130114199

PATIENT
  Age: 17 Year
  Sex: Male
  Weight: 51.2 kg

DRUGS (9)
  1. INFLIXIMAB, RECOMBINANT [Suspect]
     Indication: CROHN^S DISEASE
     Dosage: DISCONTINUED PRIOR TO STUDY ENROLLMENT
     Route: 042
     Dates: start: 20050728
  2. INFLIXIMAB, RECOMBINANT [Suspect]
     Indication: CROHN^S DISEASE
     Route: 042
     Dates: start: 20110514, end: 20110624
  3. INFLIXIMAB, RECOMBINANT [Suspect]
     Indication: CROHN^S DISEASE
     Route: 042
     Dates: start: 20091006, end: 20091117
  4. HUMIRA [Suspect]
     Indication: CROHN^S DISEASE
     Route: 065
     Dates: start: 20110708
  5. 5-ASA [Concomitant]
     Route: 048
  6. PREDNISONE [Concomitant]
  7. FERROUS SULFATE [Concomitant]
  8. VITAMIN D3 [Concomitant]
  9. MULTIVITAMINS [Concomitant]

REACTIONS (1)
  - Anal abscess [Recovered/Resolved]
